FAERS Safety Report 9473387 (Version 3)
Quarter: 2013Q3

REPORT INFORMATION
  Report Type: Spontaneous
  Country: US (occurrence: US)
  Receive Date: 20130823
  Receipt Date: 20130828
  Transmission Date: 20140515
  Serious: Yes (Hospitalization, Other)
  Sender: FDA-Public Use
  Company Number: US-JNJFOC-20130612261

PATIENT
  Age: 75 Year
  Sex: Male
  Weight: 81.65 kg

DRUGS (31)
  1. XARELTO [Suspect]
     Indication: DEEP VEIN THROMBOSIS
     Route: 048
     Dates: start: 2013, end: 2013
  2. XARELTO [Suspect]
     Indication: PULMONARY EMBOLISM
     Route: 048
     Dates: start: 2013, end: 2013
  3. CLOPIDOGREL [Suspect]
     Indication: PRODUCT USED FOR UNKNOWN INDICATION
     Route: 065
  4. ASPIRIN [Suspect]
     Indication: PRODUCT USED FOR UNKNOWN INDICATION
     Route: 065
  5. COUMADIN [Suspect]
     Indication: PULMONARY EMBOLISM
     Route: 048
  6. COUMADIN [Suspect]
     Indication: DEEP VEIN THROMBOSIS
     Route: 048
  7. METOPROLOL [Concomitant]
     Dosage: 25 MG TOTAL
     Route: 048
  8. XANAX [Concomitant]
     Route: 048
  9. LIMBITROL [Concomitant]
     Dosage: 25-10 MG
     Route: 065
  10. LIPITOR [Concomitant]
     Dosage: 10 MG TOTAL
     Route: 048
  11. AVODART [Concomitant]
     Route: 048
  12. VALIUM [Concomitant]
     Route: 048
  13. ACETAMINOPHEN DIPHENHYDRAMINE [Concomitant]
     Dosage: 25-500 MG (NIGHTLY)
     Route: 048
  14. LEXAPRO [Concomitant]
     Route: 048
  15. ALLEGRA [Concomitant]
     Route: 048
  16. LOPRESSOR [Concomitant]
     Route: 048
  17. DITROPAN [Concomitant]
     Route: 048
  18. PERCOCET [Concomitant]
     Dosage: 5-325 MG PER TABLET (2 TABLETS EVERY 4 HOURS AS NEEDED
     Route: 048
  19. RANEXA [Concomitant]
     Route: 048
  20. CARAFATE [Concomitant]
     Dosage: WITH MEALS AND NIGHTLY
     Route: 048
  21. TESTOSTERONE [Concomitant]
     Route: 030
  22. TOPAMAX [Concomitant]
     Route: 048
  23. VOLTAREN [Concomitant]
     Route: 065
  24. CARAFATE [Concomitant]
     Route: 065
  25. DEXILANT [Concomitant]
     Route: 065
  26. AMLODIPINE [Concomitant]
     Route: 065
  27. NORVASC [Concomitant]
     Route: 065
  28. NITRO-DUR [Concomitant]
     Route: 065
  29. ZOLOFT [Concomitant]
     Route: 065
  30. VESICARE [Concomitant]
     Route: 065
  31. AMBIEN [Concomitant]
     Route: 065

REACTIONS (5)
  - Gastrointestinal haemorrhage [Recovered/Resolved]
  - Polyp [Unknown]
  - Hospitalisation [Recovered/Resolved]
  - International normalised ratio increased [Unknown]
  - Anaemia [Recovered/Resolved]
